FAERS Safety Report 8987349 (Version 2)
Quarter: 2013Q1

REPORT INFORMATION
  Report Type: Report from Study
  Country: TW (occurrence: TW)
  Receive Date: 20121226
  Receipt Date: 20130111
  Transmission Date: 20140127
  Serious: Yes (Hospitalization)
  Sender: FDA-Public Use
  Company Number: TW-ROCHE-1173817

PATIENT
  Age: 87 Year
  Sex: Female

DRUGS (3)
  1. ALTEPLASE [Suspect]
     Indication: ISCHAEMIC STROKE
     Dosage: 50 MG WITHIN 10 MIN
     Route: 013
  2. HEPARIN [Suspect]
     Indication: ISCHAEMIC STROKE
     Route: 065
  3. ASPIRIN [Suspect]
     Indication: ANTIPLATELET THERAPY
     Route: 065

REACTIONS (1)
  - Brain oedema [Unknown]
